FAERS Safety Report 9761139 (Version 2)
Quarter: 2014Q1

REPORT INFORMATION
  Report Type: Spontaneous
  Country: US (occurrence: US)
  Receive Date: 20131216
  Receipt Date: 20140123
  Transmission Date: 20141002
  Serious: Yes (Other)
  Sender: FDA-Public Use
  Company Number: US-PFIZER INC-2013359131

PATIENT
  Age: 49 Year
  Sex: Female
  Weight: 95.24 kg

DRUGS (4)
  1. RELPAX [Suspect]
     Indication: MIGRAINE
     Dosage: 1 DF, AS NEEDED
     Route: 048
     Dates: start: 20130215
  2. RELPAX [Suspect]
     Dosage: 40 MG, 2X/DAY
     Route: 048
     Dates: start: 201307
  3. RELPAX [Suspect]
     Dosage: 40 MG, 2X/DAY
     Route: 048
     Dates: start: 2013
  4. TOPAMAX [Concomitant]
     Indication: MIGRAINE
     Dosage: 50 MG, DAILY
     Dates: start: 20130215

REACTIONS (5)
  - Choking [Unknown]
  - Throat tightness [Unknown]
  - Discomfort [Unknown]
  - Pain [Unknown]
  - Dysphagia [Unknown]
